FAERS Safety Report 12892963 (Version 1)
Quarter: 2016Q4

REPORT INFORMATION
  Report Type: Spontaneous
  Country: CH (occurrence: CH)
  Receive Date: 20161028
  Receipt Date: 20161028
  Transmission Date: 20170207
  Serious: Yes (Other)
  Sender: FDA-Public Use
  Company Number: CH-PFIZER INC-2016488737

PATIENT
  Age: 42 Year
  Sex: Female

DRUGS (5)
  1. DEPAKINE /00228502/ [Interacting]
     Active Substance: VALPROATE SODIUM
     Indication: BIPOLAR DISORDER
     Dosage: 300 MG, 2X/DAY
     Route: 048
     Dates: start: 2015, end: 201601
  2. LYRICA [Suspect]
     Active Substance: PREGABALIN
     Indication: BIPOLAR DISORDER
     Dosage: 50 MG - 0 - 100 MG /DAILY, ONGOING WEANING SINCE 22JAN2016
     Route: 048
     Dates: start: 2015, end: 201601
  3. RIVOTRIL [Suspect]
     Active Substance: CLONAZEPAM
     Dosage: UNK
     Route: 048
     Dates: start: 20160122
  4. TEMESTA [Suspect]
     Active Substance: LORAZEPAM
     Dosage: UNK
     Route: 048
     Dates: start: 20160122
  5. LAMICTAL [Interacting]
     Active Substance: LAMOTRIGINE
     Indication: BIPOLAR DISORDER
     Dosage: 50 MG, DAILY
     Route: 048
     Dates: start: 2015

REACTIONS (3)
  - Drug interaction [Unknown]
  - Abortion spontaneous [Unknown]
  - Product use issue [Unknown]

NARRATIVE: CASE EVENT DATE: 2015
